FAERS Safety Report 12389804 (Version 3)
Quarter: 2016Q2

REPORT INFORMATION
  Report Type: Spontaneous
  Country: US (occurrence: US)
  Receive Date: 20160520
  Receipt Date: 20160614
  Transmission Date: 20160815
  Serious: Yes (Hospitalization, Other)
  Sender: FDA-Public Use
  Company Number: US-ACTELION-A-US2016-136224

PATIENT
  Age: 61 Year
  Sex: Male

DRUGS (22)
  1. FORADIL [Concomitant]
     Active Substance: FORMOTEROL FUMARATE
  2. VITAMIN D [Concomitant]
     Active Substance: CHOLECALCIFEROL
  3. REQUIP [Concomitant]
     Active Substance: ROPINIROLE HYDROCHLORIDE
  4. ASPIRIN. [Concomitant]
     Active Substance: ASPIRIN
  5. AMLODIPINE [Concomitant]
     Active Substance: AMLODIPINE BESYLATE
  6. UPTRAVI [Suspect]
     Active Substance: SELEXIPAG
     Indication: PULMONARY ARTERIAL HYPERTENSION
     Dosage: 1000 MCG, BID
     Route: 048
     Dates: end: 20160511
  7. UPTRAVI [Suspect]
     Active Substance: SELEXIPAG
     Dosage: UNK
     Route: 048
     Dates: start: 20160330
  8. LETAIRIS [Suspect]
     Active Substance: AMBRISENTAN
     Indication: PULMONARY HYPERTENSION
     Dosage: UNK
     Route: 065
     Dates: start: 20160205
  9. FLONASE [Concomitant]
     Active Substance: FLUTICASONE PROPIONATE
  10. TORSEMIDE. [Concomitant]
     Active Substance: TORSEMIDE
  11. IPRATROPIUM [Concomitant]
     Active Substance: IPRATROPIUM
  12. NOVOLOG [Concomitant]
     Active Substance: INSULIN ASPART
  13. RESTORIL [Concomitant]
     Active Substance: TEMAZEPAM
  14. AMLODIPINE BESYLATE AND ATORVASTATIN CALCIUM [Concomitant]
     Active Substance: AMLODIPINE BESYLATE\ATORVASTATIN CALCIUM
  15. ALBUTEROL. [Concomitant]
     Active Substance: ALBUTEROL
  16. LEXAPRO [Concomitant]
     Active Substance: ESCITALOPRAM OXALATE
  17. ALLOPURINOL. [Concomitant]
     Active Substance: ALLOPURINOL
  18. ADCIRCA [Concomitant]
     Active Substance: TADALAFIL
     Indication: PRODUCT USED FOR UNKNOWN INDICATION
     Dosage: UNK
     Route: 065
  19. PREDNISONE. [Concomitant]
     Active Substance: PREDNISONE
  20. HYDRALAZINE [Concomitant]
     Active Substance: HYDRALAZINE HYDROCHLORIDE
  21. ADVAIR HFA [Concomitant]
     Active Substance: FLUTICASONE PROPIONATE\SALMETEROL XINAFOATE
  22. CLONIDINE. [Concomitant]
     Active Substance: CLONIDINE

REACTIONS (9)
  - Cardiac disorder [Recovered/Resolved]
  - Myalgia [Unknown]
  - Rash [Unknown]
  - Oedema [Recovered/Resolved]
  - Arthralgia [Unknown]
  - Migraine [Unknown]
  - Faeces discoloured [Unknown]
  - Gastrointestinal haemorrhage [Unknown]
  - Anaemia [Unknown]

NARRATIVE: CASE EVENT DATE: 20160501
